FAERS Safety Report 12727584 (Version 2)
Quarter: 2016Q3

REPORT INFORMATION
  Report Type: Spontaneous
  Country: None (occurrence: BR)
  Receive Date: 20160909
  Receipt Date: 20160916
  Transmission Date: 20161109
  Serious: Yes (Hospitalization)
  Sender: FDA-Public Use
  Company Number: BR-MERCK KGAA-1057193

PATIENT

DRUGS (1)
  1. NOVOTHYROX [Suspect]
     Active Substance: LEVOTHYROXINE SODIUM

REACTIONS (11)
  - Nervousness [None]
  - Feeling abnormal [None]
  - Pruritus [None]
  - Asthenia [None]
  - Alopecia [None]
  - Dysgeusia [None]
  - Constipation [None]
  - Vision blurred [None]
  - Joint swelling [None]
  - Drug ineffective [None]
  - Somnolence [None]
